FAERS Safety Report 10864379 (Version 1)
Quarter: 2015Q1

REPORT INFORMATION
  Report Type: Spontaneous
  Country: US (occurrence: US)
  Receive Date: 20150223
  Receipt Date: 20150223
  Transmission Date: 20150721
  Serious: Yes (Other)
  Sender: FDA-Public Use
  Company Number: US-CELGENEUS-163-21880-14060444

PATIENT
  Age: 65 Year
  Sex: Male

DRUGS (4)
  1. REVLIMID [Suspect]
     Active Substance: LENALIDOMIDE
     Indication: MYELODYSPLASTIC SYNDROME
     Dosage: 10 MILLIGRAM
     Route: 048
     Dates: start: 20140515, end: 20140518
  2. CLARITIN [Concomitant]
     Active Substance: LORATADINE
     Indication: PRURITUS
     Route: 065
     Dates: start: 201405
  3. BENADRYL [Concomitant]
     Active Substance: DIPHENHYDRAMINE HYDROCHLORIDE
     Indication: PRURITUS
     Route: 065
     Dates: start: 201405
  4. PREDNISONE. [Concomitant]
     Active Substance: PREDNISONE
     Indication: PRURITUS
     Route: 065
     Dates: start: 201405, end: 201405

REACTIONS (2)
  - Swelling face [Recovered/Resolved]
  - Pruritus [Unknown]

NARRATIVE: CASE EVENT DATE: 201405
